FAERS Safety Report 8854218 (Version 1)
Quarter: 2012Q4

REPORT INFORMATION
  Report Type: Spontaneous
  Country: US (occurrence: None)
  Receive Date: 20121019
  Receipt Date: 20121019
  Transmission Date: 20130627
  Serious: Yes (Life-Threatening)
  Sender: FDA-Public Use
  Company Number: None

PATIENT
  Age: 9 Year
  Sex: Male
  Weight: 35.38 kg

DRUGS (2)
  1. AMOXICILLIN [Suspect]
  2. AUGMENTIN [Suspect]

REACTIONS (17)
  - Weight increased [None]
  - Fatigue [None]
  - Failure to thrive [None]
  - Mental disorder [None]
  - Emotional disorder [None]
  - Fatigue [None]
  - Hyperhidrosis [None]
  - Erythema [None]
  - Liver injury [None]
  - Blood cholesterol increased [None]
  - Hepatic steatosis [None]
  - Xanthoma [None]
  - Hair texture abnormal [None]
  - Vitamin D decreased [None]
  - Vitamin K decreased [None]
  - Chromaturia [None]
  - Malaise [None]
